FAERS Safety Report 8572487-4 (Version None)
Quarter: 2012Q3

REPORT INFORMATION
  Report Type: 
  Country: None (occurrence: None)
  Receive Date: 20120806
  Receipt Date: 20120726
  Transmission Date: 20120928
  Serious: Yes (Other)
  Sender: FDA-Public Use
  Company Number: FR-ASTRAZENECA-2012SE53900

PATIENT
  Sex: Female

DRUGS (13)
  1. TENORMIN [Concomitant]
  2. VITAMINE A COLLYRIUM [Concomitant]
  3. MOVIPREP [Concomitant]
  4. LACRYFLUID [Concomitant]
  5. HIRUCREME [Concomitant]
  6. FEMARA [Concomitant]
  7. NIFUROXAZIDE [Concomitant]
  8. OMEPRAZOLE [Suspect]
     Route: 048
     Dates: start: 20120704, end: 20120705
  9. AUGMENTIN '500' [Suspect]
     Route: 042
     Dates: start: 20120704, end: 20120705
  10. CERVOXAN [Concomitant]
  11. ACETAMINOPHEN [Concomitant]
  12. CALCIUM D3 [Concomitant]
  13. LORAZEPAM [Concomitant]

REACTIONS (8)
  - PLATELET COUNT DECREASED [None]
  - JAUNDICE [None]
  - NEUTROPENIA [None]
  - OXYGEN SATURATION DECREASED [None]
  - RENAL FAILURE [None]
  - HAEMOGLOBIN DECREASED [None]
  - INTESTINAL OBSTRUCTION [None]
  - FEBRILE NEUTROPENIA [None]
